FAERS Safety Report 16430839 (Version 1)
Quarter: 2019Q2

REPORT INFORMATION
  Report Type: Report from Study
  Country: BE (occurrence: BE)
  Receive Date: 20190614
  Receipt Date: 20190614
  Transmission Date: 20190711
  Serious: Yes (Death, Hospitalization)
  Sender: FDA-Public Use
  Company Number: BE-PFIZER INC-2019253186

PATIENT
  Age: 70 Year
  Sex: Male
  Weight: 83 kg

DRUGS (13)
  1. LEUCOVORIN [FOLINIC ACID] [Suspect]
     Active Substance: LEUCOVORIN
     Indication: COLORECTAL CANCER METASTATIC
     Dosage: 1 UNK, EVERY 2 WEEKS
     Route: 042
     Dates: start: 20180201
  2. SIMVASTATINE [Concomitant]
     Active Substance: SIMVASTATIN
     Indication: HYPERCHOLESTEROLAEMIA
  3. BEVACIZUMAB. [Suspect]
     Active Substance: BEVACIZUMAB
     Indication: COLORECTAL CANCER METASTATIC
     Dosage: UNK, EVERY 2 WEEKS
     Route: 042
     Dates: start: 20180111, end: 20180612
  4. PANTOPRAZOL [PANTOPRAZOLE] [Concomitant]
     Active Substance: PANTOPRAZOLE
     Indication: PROPHYLAXIS
     Route: 065
     Dates: start: 20180123, end: 20180124
  5. FLUOROURACIL. [Suspect]
     Active Substance: FLUOROURACIL
     Dosage: 1 UNK, EVERY 2 WEEKS
     Route: 042
     Dates: start: 20180201
  6. LEUCOVORIN [FOLINIC ACID] [Suspect]
     Active Substance: LEUCOVORIN
     Dosage: 1 UNK, EVERY 2 WEEKS
     Route: 042
     Dates: start: 20180111, end: 20180612
  7. LITICAN [ALIZAPRIDE HYDROCHLORIDE] [Concomitant]
  8. ESOMEPRAZOL [ESOMEPRAZOLE] [Concomitant]
     Indication: PROPHYLAXIS
     Route: 065
     Dates: start: 20180125
  9. ESOMEPRAZOL [ESOMEPRAZOLE] [Concomitant]
     Dosage: UNK
     Route: 065
     Dates: start: 20170608, end: 20180122
  10. FLUOROURACIL. [Suspect]
     Active Substance: FLUOROURACIL
     Indication: COLORECTAL CANCER METASTATIC
     Dosage: 1 UNK, EVERY 2 WEEKS
     Route: 042
     Dates: start: 20180111, end: 20180612
  11. IRINOTECAN HCL [Suspect]
     Active Substance: IRINOTECAN HYDROCHLORIDE
     Indication: COLORECTAL CANCER METASTATIC
     Dosage: 2 UNK,
     Route: 042
     Dates: start: 20180111, end: 20180612
  12. BEVACIZUMAB. [Suspect]
     Active Substance: BEVACIZUMAB
     Dosage: 1 UNK, EVERY 2 WEEKS
     Route: 042
     Dates: start: 20180201
  13. CLEXANE [Concomitant]
     Active Substance: ENOXAPARIN SODIUM
     Indication: PROPHYLAXIS
     Route: 065
     Dates: start: 20180123, end: 20180126

REACTIONS (5)
  - Gastrointestinal pain [Recovered/Resolved]
  - Dehydration [Recovering/Resolving]
  - Febrile neutropenia [Recovered/Resolved]
  - Anaemia [Not Recovered/Not Resolved]
  - Subileus [Fatal]

NARRATIVE: CASE EVENT DATE: 20180122
